FAERS Safety Report 22646848 (Version 2)
Quarter: 2023Q2

REPORT INFORMATION
  Report Type: Report from Study
  Country: US (occurrence: US)
  Receive Date: 20230627
  Receipt Date: 20230629
  Transmission Date: 20230722
  Serious: Yes (Life-Threatening, Hospitalization)
  Sender: FDA-Public Use
  Company Number: US-JNJFOC-20230559800

PATIENT
  Age: 67 Year
  Sex: Female
  Weight: 94 kg

DRUGS (7)
  1. TECLISTAMAB [Suspect]
     Active Substance: TECLISTAMAB
     Indication: Plasma cell myeloma
     Dosage: DATE OF FIRST PRIMING DOSE
     Route: 058
     Dates: start: 20230222
  2. TECLISTAMAB [Suspect]
     Active Substance: TECLISTAMAB
     Dosage: DATE OF SECOND PRIMING DOSE
     Route: 058
     Dates: start: 20230224
  3. TECLISTAMAB [Suspect]
     Active Substance: TECLISTAMAB
     Dosage: DATE OF THIRD PRIMING DOSE
     Route: 058
     Dates: start: 20230227
  4. TECLISTAMAB [Suspect]
     Active Substance: TECLISTAMAB
     Dosage: DATE OF CYCLE 1 DAY 1
     Route: 058
     Dates: start: 20230301
  5. TECLISTAMAB [Suspect]
     Active Substance: TECLISTAMAB
     Dosage: DATE OF MOST RECENT DOSE
     Route: 058
     Dates: start: 20230327
  6. LYRICA [Concomitant]
     Active Substance: PREGABALIN
     Indication: Product used for unknown indication
     Route: 048
     Dates: start: 20210812
  7. ROPINIROLE HYDROCHLORIDE [Concomitant]
     Active Substance: ROPINIROLE HYDROCHLORIDE
     Indication: Restless legs syndrome
     Route: 048
     Dates: start: 20220106

REACTIONS (2)
  - Sepsis [Not Recovered/Not Resolved]
  - Pneumonia [Recovered/Resolved]

NARRATIVE: CASE EVENT DATE: 20230516
